FAERS Safety Report 9125733 (Version 1)
Quarter: 2013Q1

REPORT INFORMATION
  Report Type: Report from Study
  Country: US (occurrence: US)
  Receive Date: 20130121
  Receipt Date: 20130121
  Transmission Date: 20140127
  Serious: Yes (Hospitalization, Other)
  Sender: FDA-Public Use
  Company Number: US-ABBOTT-12P-163-0948804-00

PATIENT
  Sex: Female
  Weight: 101.7 kg

DRUGS (9)
  1. HUMIRA [Suspect]
     Indication: CROHN^S DISEASE
     Dosage: DAY 1
     Route: 058
     Dates: start: 201203
  2. HUMIRA [Suspect]
     Dosage: DAY 16
  3. HUMIRA [Suspect]
     Dates: end: 20120426
  4. FLAGYL [Suspect]
     Indication: PRODUCT USED FOR UNKNOWN INDICATION
  5. ZOFRAN [Concomitant]
     Indication: PRODUCT USED FOR UNKNOWN INDICATION
  6. VICODIN [Concomitant]
     Indication: PRODUCT USED FOR UNKNOWN INDICATION
     Dosage: 7.5-500
  7. OMEPRAZOLE [Concomitant]
     Indication: PRODUCT USED FOR UNKNOWN INDICATION
  8. PREDNISONE [Concomitant]
     Indication: PRODUCT USED FOR UNKNOWN INDICATION
  9. CIPRO [Concomitant]
     Indication: PRODUCT USED FOR UNKNOWN INDICATION

REACTIONS (11)
  - Intestinal obstruction [Unknown]
  - Intestinal perforation [Recovered/Resolved]
  - Crohn^s disease [Recovered/Resolved]
  - Abdominal abscess [Recovered/Resolved]
  - Ovarian cyst [Unknown]
  - Peritonitis [Recovered/Resolved]
  - Dysuria [Unknown]
  - Sinusitis [Recovering/Resolving]
  - Anaemia [Unknown]
  - Aphthous stomatitis [Unknown]
  - Dysgeusia [Unknown]
